FAERS Safety Report 23511112 (Version 1)
Quarter: 2024Q1

REPORT INFORMATION
  Report Type: Spontaneous
  Country: US (occurrence: US)
  Receive Date: 20240212
  Receipt Date: 20240212
  Transmission Date: 20240409
  Serious: No
  Sender: FDA-Public Use
  Company Number: US-TEVA-VS-3146801

PATIENT
  Sex: Female

DRUGS (1)
  1. AUSTEDO [Suspect]
     Active Substance: DEUTETRABENAZINE
     Indication: Tardive dyskinesia
     Dosage: PRODUCT - CODE: 0172?PRODUCT - NDC / DIN / MA #: 68546-0172-60
     Route: 048
     Dates: start: 20220117

REACTIONS (2)
  - Dyskinesia [Unknown]
  - Drug ineffective [Unknown]
